FAERS Safety Report 4527045-5 (Version None)
Quarter: 2004Q4

REPORT INFORMATION
  Report Type: 
  Country: None (occurrence: None)
  Receive Date: 20041129
  Receipt Date: 20040621
  Transmission Date: 20050328
  Serious: Yes (Life-Threatening, Hospitalization)
  Sender: FDA-Public Use
  Company Number: USA040465113

PATIENT
  Age: 60 Year
  Sex: Male

DRUGS (9)
  1. ZYPREXA [Suspect]
     Indication: ANXIETY
     Dosage: 20 MG/3 DAY
     Dates: start: 20020101
  2. ZYPREXA [Suspect]
     Indication: DEPRESSION
     Dosage: 20 MG/3 DAY
     Dates: start: 20020101
  3. ZYPREXA [Suspect]
     Indication: PARANOIA
     Dosage: 20 MG/3 DAY
     Dates: start: 20020101
  4. ZYPREXA [Suspect]
     Indication: ANXIETY
     Dosage: 20 MG/4 DAY
     Dates: start: 20040401
  5. ZYPREXA [Suspect]
     Indication: DEPRESSION
     Dosage: 20 MG/4 DAY
     Dates: start: 20040401
  6. ZYPREXA [Suspect]
     Indication: PARANOIA
     Dosage: 20 MG/4 DAY
     Dates: start: 20040401
  7. LORAZEPAM [Concomitant]
  8. ABILIFY [Concomitant]
  9. LAMICTAL [Concomitant]

REACTIONS (5)
  - AGITATION [None]
  - DRUG INEFFECTIVE [None]
  - PARANOIA [None]
  - PRESCRIBED OVERDOSE [None]
  - SUICIDE ATTEMPT [None]
